FAERS Safety Report 21960743 (Version 1)
Quarter: 2023Q1

REPORT INFORMATION
  Report Type: Spontaneous
  Country: JP (occurrence: None)
  Receive Date: 20230207
  Receipt Date: 20230207
  Transmission Date: 20230417
  Serious: Yes (Life-Threatening, Other)
  Sender: FDA-Public Use
  Company Number: JP-MICRO LABS LIMITED-ML2023-00548

PATIENT
  Age: 80 Year
  Sex: Male
  Weight: 48 kg

DRUGS (8)
  1. APIXABAN [Suspect]
     Active Substance: APIXABAN
     Indication: Atrial fibrillation
  2. CEFAZOLIN [Suspect]
     Active Substance: CEFAZOLIN
     Indication: Arthritis bacterial
  3. ENALAPRIL [Concomitant]
     Active Substance: ENALAPRIL
     Indication: Hypertension
  4. ENALAPRIL [Concomitant]
     Active Substance: ENALAPRIL
     Indication: Dyslipidaemia
  5. ENALAPRIL [Concomitant]
     Active Substance: ENALAPRIL
     Indication: Cerebral infarction
  6. ROSUVASTATIN [Concomitant]
     Active Substance: ROSUVASTATIN
     Indication: Dyslipidaemia
  7. ROSUVASTATIN [Concomitant]
     Active Substance: ROSUVASTATIN
     Indication: Hypertension
  8. ROSUVASTATIN [Concomitant]
     Active Substance: ROSUVASTATIN
     Indication: Cerebral infarction

REACTIONS (2)
  - Pulmonary alveolar haemorrhage [Recovered/Resolved]
  - Drug interaction [Unknown]
